FAERS Safety Report 19856844 (Version 1)
Quarter: 2021Q3

REPORT INFORMATION
  Report Type: Spontaneous
  Country: US (occurrence: US)
  Receive Date: 20210920
  Receipt Date: 20210920
  Transmission Date: 20211014
  Serious: No
  Sender: FDA-Public Use
  Company Number: US-CURIUM-2021000638

PATIENT
  Age: 64 Year
  Sex: Male
  Weight: 28.1 kg

DRUGS (2)
  1. SESTAMIBI [Suspect]
     Active Substance: TECHNETIUM TC-99M SESTAMIBI
     Route: 065
     Dates: start: 20210802, end: 20210802
  2. ULTRA?TECHNEKOW [Suspect]
     Active Substance: TECHNETIUM TC-99M
     Route: 065
     Dates: start: 20210802, end: 20210802

REACTIONS (1)
  - Scan myocardial perfusion abnormal [Recovered/Resolved]

NARRATIVE: CASE EVENT DATE: 20210802
